FAERS Safety Report 24201726 (Version 3)
Quarter: 2025Q1

REPORT INFORMATION
  Report Type: Spontaneous
  Country: CA (occurrence: CA)
  Receive Date: 20240812
  Receipt Date: 20250319
  Transmission Date: 20250408
  Serious: Yes (Life-Threatening, Hospitalization, Disabling, Other)
  Sender: BRISTOL-MYERS SQUIBB COMPANY
  Company Number: CA-BRISTOL-MYERS SQUIBB COMPANY-2024-125511

PATIENT
  Age: 40 Year
  Sex: Female
  Weight: 96 kg

DRUGS (402)
  1. ORENCIA [Suspect]
     Active Substance: ABATACEPT
     Indication: Rheumatoid arthritis
  2. ORENCIA [Suspect]
     Active Substance: ABATACEPT
  3. ORENCIA [Suspect]
     Active Substance: ABATACEPT
  4. ORENCIA [Suspect]
     Active Substance: ABATACEPT
  5. ORENCIA [Suspect]
     Active Substance: ABATACEPT
  6. ORENCIA [Suspect]
     Active Substance: ABATACEPT
  7. ORENCIA [Suspect]
     Active Substance: ABATACEPT
  8. ORENCIA [Suspect]
     Active Substance: ABATACEPT
     Indication: Rheumatoid arthritis
     Route: 058
  9. ORENCIA [Suspect]
     Active Substance: ABATACEPT
     Indication: Rheumatoid arthritis
     Route: 042
  10. ORENCIA [Suspect]
     Active Substance: ABATACEPT
     Route: 042
  11. ORENCIA [Suspect]
     Active Substance: ABATACEPT
     Route: 042
  12. TRIAMCINOLONE ACETONIDE [Suspect]
     Active Substance: TRIAMCINOLONE ACETONIDE
     Indication: Rheumatoid arthritis
     Route: 013
  13. METFORMIN HYDROCHLORIDE [Concomitant]
     Active Substance: METFORMIN HYDROCHLORIDE
     Indication: Rheumatoid arthritis
     Route: 040
  14. CHLORHEXIDINE GLUCONATE [Concomitant]
     Active Substance: CHLORHEXIDINE GLUCONATE
     Indication: Product used for unknown indication
  15. CHLORHEXIDINE GLUCONATE [Concomitant]
     Active Substance: CHLORHEXIDINE GLUCONATE
     Route: 061
  16. CHLORHEXIDINE GLUCONATE\ISOPROPYL ALCOHOL [Concomitant]
     Active Substance: CHLORHEXIDINE GLUCONATE\ISOPROPYL ALCOHOL
     Indication: Product used for unknown indication
  17. ACETAMINOPHEN [Concomitant]
     Active Substance: ACETAMINOPHEN
     Indication: Rheumatoid arthritis
  18. ADALIMUMAB [Concomitant]
     Active Substance: ADALIMUMAB
     Indication: Rheumatoid arthritis
  19. ADALIMUMAB [Concomitant]
     Active Substance: ADALIMUMAB
  20. ADALIMUMAB [Concomitant]
     Active Substance: ADALIMUMAB
     Route: 041
  21. ADALIMUMAB [Concomitant]
     Active Substance: ADALIMUMAB
     Route: 041
  22. ADALIMUMAB [Concomitant]
     Active Substance: ADALIMUMAB
  23. AIMOVIG [Concomitant]
     Active Substance: ERENUMAB-AOOE
     Indication: Product used for unknown indication
  24. AIMOVIG [Concomitant]
     Active Substance: ERENUMAB-AOOE
  25. AIMOVIG [Concomitant]
     Active Substance: ERENUMAB-AOOE
  26. AIMOVIG [Concomitant]
     Active Substance: ERENUMAB-AOOE
  27. ALENDRONATE SODIUM [Concomitant]
     Active Substance: ALENDRONATE SODIUM
     Indication: Rheumatoid arthritis
  28. ALENDRONATE SODIUM [Concomitant]
     Active Substance: ALENDRONATE SODIUM
     Route: 048
  29. ALENDRONATE SODIUM [Concomitant]
     Active Substance: ALENDRONATE SODIUM
  30. AZATHIOPRINE [Concomitant]
     Active Substance: AZATHIOPRINE
     Indication: Rheumatoid arthritis
  31. AZATHIOPRINE [Concomitant]
     Active Substance: AZATHIOPRINE
  32. CANDESARTAN [Concomitant]
     Active Substance: CANDESARTAN
     Indication: Migraine
  33. CANDESARTAN [Concomitant]
     Active Substance: CANDESARTAN
     Route: 048
  34. CETIRIZINE [Concomitant]
     Active Substance: CETIRIZINE HYDROCHLORIDE
     Indication: Rheumatoid arthritis
  35. CETIRIZINE [Concomitant]
     Active Substance: CETIRIZINE HYDROCHLORIDE
  36. CETIRIZINE [Concomitant]
     Active Substance: CETIRIZINE HYDROCHLORIDE
  37. CETIRIZINE [Concomitant]
     Active Substance: CETIRIZINE HYDROCHLORIDE
  38. CETIRIZINE [Concomitant]
     Active Substance: CETIRIZINE HYDROCHLORIDE
  39. CETIRIZINE [Concomitant]
     Active Substance: CETIRIZINE HYDROCHLORIDE
  40. CETIRIZINE [Concomitant]
     Active Substance: CETIRIZINE HYDROCHLORIDE
  41. COSENTYX [Concomitant]
     Active Substance: SECUKINUMAB
     Indication: Psoriatic arthropathy
  42. DICLOFENAC [Concomitant]
     Active Substance: DICLOFENAC
     Indication: Product used for unknown indication
  43. ERELZI [Concomitant]
     Active Substance: ETANERCEPT-SZZS
     Indication: Rheumatoid arthritis
  44. FLUMETHASONE PIVALATE [Concomitant]
     Active Substance: FLUMETHASONE PIVALATE
     Indication: Product used for unknown indication
  45. FLUMETHASONE PIVALATE [Concomitant]
     Active Substance: FLUMETHASONE PIVALATE
  46. FOLIC ACID [Concomitant]
     Active Substance: FOLIC ACID
     Indication: Rheumatoid arthritis
  47. FOLIC ACID [Concomitant]
     Active Substance: FOLIC ACID
  48. FOLIC ACID [Concomitant]
     Active Substance: FOLIC ACID
  49. FOLIC ACID [Concomitant]
     Active Substance: FOLIC ACID
  50. FOLIC ACID [Concomitant]
     Active Substance: FOLIC ACID
  51. FOLIC ACID [Concomitant]
     Active Substance: FOLIC ACID
  52. FOLIC ACID [Concomitant]
     Active Substance: FOLIC ACID
  53. FOLIC ACID [Concomitant]
     Active Substance: FOLIC ACID
  54. HAIR KERATIN AMINO ACIDS GOLD COMPLEX [Concomitant]
     Active Substance: HAIR KERATIN AMINO ACIDS GOLD COMPLEX
     Indication: Product used for unknown indication
  55. GOLD SODIUM THIOMALATE [Concomitant]
     Active Substance: GOLD SODIUM THIOMALATE
     Indication: Product used for unknown indication
  56. HYDROCORTISONE [Concomitant]
     Active Substance: HYDROCORTISONE
     Indication: Product used for unknown indication
  57. HYDROCORTISONE PROBUTATE [Concomitant]
     Active Substance: HYDROCORTISONE PROBUTATE
     Indication: Rheumatoid arthritis
  58. HYDROXYCHLOROQUINE [Concomitant]
     Active Substance: HYDROXYCHLOROQUINE
     Indication: Rheumatoid arthritis
  59. HYDROXYCHLOROQUINE [Concomitant]
     Active Substance: HYDROXYCHLOROQUINE
  60. HYDROXYCHLOROQUINE [Concomitant]
     Active Substance: HYDROXYCHLOROQUINE
     Route: 048
  61. HYDROXYCHLOROQUINE [Concomitant]
     Active Substance: HYDROXYCHLOROQUINE
     Route: 016
  62. HYDROXYCHLOROQUINE [Concomitant]
     Active Substance: HYDROXYCHLOROQUINE
     Route: 058
  63. HYDROXYCHLOROQUINE [Concomitant]
     Active Substance: HYDROXYCHLOROQUINE
  64. HYDROXYCHLOROQUINE [Concomitant]
     Active Substance: HYDROXYCHLOROQUINE
  65. HYDROXYCHLOROQUINE [Concomitant]
     Active Substance: HYDROXYCHLOROQUINE
     Route: 048
  66. HYDROXYCHLOROQUINE [Concomitant]
     Active Substance: HYDROXYCHLOROQUINE
     Route: 048
  67. HYDROXYCHLOROQUINE [Concomitant]
     Active Substance: HYDROXYCHLOROQUINE
  68. HYDROXYCHLOROQUINE [Concomitant]
     Active Substance: HYDROXYCHLOROQUINE
     Route: 058
  69. HYDROXYCHLOROQUINE [Concomitant]
     Active Substance: HYDROXYCHLOROQUINE
  70. HYDROXYCHLOROQUINE [Concomitant]
     Active Substance: HYDROXYCHLOROQUINE
  71. HYDROXYCHLOROQUINE [Concomitant]
     Active Substance: HYDROXYCHLOROQUINE
     Route: 048
  72. HYDROXYCHLOROQUINE [Concomitant]
     Active Substance: HYDROXYCHLOROQUINE
     Route: 058
  73. HYDROXYCHLOROQUINE SULFATE [Concomitant]
     Active Substance: HYDROXYCHLOROQUINE SULFATE
     Indication: Rheumatoid arthritis
  74. HYDROXYCHLOROQUINE SULFATE [Concomitant]
     Active Substance: HYDROXYCHLOROQUINE SULFATE
  75. HYDROXYCHLOROQUINE SULFATE [Concomitant]
     Active Substance: HYDROXYCHLOROQUINE SULFATE
  76. HYDROXYCHLOROQUINE SULFATE [Concomitant]
     Active Substance: HYDROXYCHLOROQUINE SULFATE
     Route: 048
  77. HYDROXYCHLOROQUINE SULFATE [Concomitant]
     Active Substance: HYDROXYCHLOROQUINE SULFATE
  78. HYDROXYCHLOROQUINE SULFATE [Concomitant]
     Active Substance: HYDROXYCHLOROQUINE SULFATE
     Route: 048
  79. INFLIXIMAB [Concomitant]
     Active Substance: INFLIXIMAB
     Indication: Rheumatoid arthritis
     Route: 040
  80. INFLIXIMAB [Concomitant]
     Active Substance: INFLIXIMAB
  81. INFLIXIMAB [Concomitant]
     Active Substance: INFLIXIMAB
  82. INFLIXIMAB [Concomitant]
     Active Substance: INFLIXIMAB
     Route: 040
  83. INFLIXIMAB [Concomitant]
     Active Substance: INFLIXIMAB
  84. ISOPROPYL ALCOHOL [Concomitant]
     Active Substance: ISOPROPYL ALCOHOL
     Indication: Product used for unknown indication
  85. ISOPROPYL ALCOHOL [Concomitant]
     Active Substance: ISOPROPYL ALCOHOL
  86. LAMICTAL [Concomitant]
     Active Substance: LAMOTRIGINE
     Indication: Product used for unknown indication
     Route: 048
  87. LAMICTAL [Concomitant]
     Active Substance: LAMOTRIGINE
     Route: 048
  88. LAMICTAL [Concomitant]
     Active Substance: LAMOTRIGINE
     Route: 048
  89. LAMICTAL [Concomitant]
     Active Substance: LAMOTRIGINE
     Route: 048
  90. LAMICTAL [Concomitant]
     Active Substance: LAMOTRIGINE
     Route: 048
  91. LAMICTAL [Concomitant]
     Active Substance: LAMOTRIGINE
     Route: 048
  92. MAGNESIUM CITRATE [Concomitant]
     Active Substance: MAGNESIUM CITRATE
     Indication: Product used for unknown indication
  93. MEGLUMINE [Concomitant]
     Active Substance: MEGLUMINE
     Indication: Product used for unknown indication
  94. MEGLUMINE [Concomitant]
     Active Substance: MEGLUMINE
  95. MEGLUMINE [Concomitant]
     Active Substance: MEGLUMINE
     Route: 040
  96. METHOTREXATE [Concomitant]
     Active Substance: METHOTREXATE
     Indication: Rheumatoid arthritis
  97. METHOTREXATE [Concomitant]
     Active Substance: METHOTREXATE
  98. METHOTREXATE [Concomitant]
     Active Substance: METHOTREXATE
  99. METHOTREXATE [Concomitant]
     Active Substance: METHOTREXATE
  100. METHOTREXATE [Concomitant]
     Active Substance: METHOTREXATE
  101. METHOTREXATE [Concomitant]
     Active Substance: METHOTREXATE
  102. METHOTREXATE [Concomitant]
     Active Substance: METHOTREXATE
  103. METHOTREXATE [Concomitant]
     Active Substance: METHOTREXATE
     Route: 048
  104. METHOTREXATE [Concomitant]
     Active Substance: METHOTREXATE
     Route: 048
  105. METHOTREXATE [Concomitant]
     Active Substance: METHOTREXATE
     Route: 048
  106. METHOTREXATE [Concomitant]
     Active Substance: METHOTREXATE
     Route: 048
  107. METHOTREXATE [Concomitant]
     Active Substance: METHOTREXATE
     Route: 048
  108. METHOTREXATE [Concomitant]
     Active Substance: METHOTREXATE
     Route: 048
  109. METHOTREXATE [Concomitant]
     Active Substance: METHOTREXATE
     Route: 048
  110. METHOTREXATE [Concomitant]
     Active Substance: METHOTREXATE
     Route: 058
  111. METHOTREXATE [Concomitant]
     Active Substance: METHOTREXATE
     Route: 013
  112. METHOTREXATE [Concomitant]
     Active Substance: METHOTREXATE
     Route: 013
  113. METHOTREXATE [Concomitant]
     Active Substance: METHOTREXATE
  114. METHOTREXATE [Concomitant]
     Active Substance: METHOTREXATE
     Route: 058
  115. METHOTREXATE [Concomitant]
     Active Substance: METHOTREXATE
     Route: 013
  116. METHOTREXATE [Concomitant]
     Active Substance: METHOTREXATE
     Route: 016
  117. METHYLPREDNISOLONE [Concomitant]
     Active Substance: METHYLPREDNISOLONE
     Indication: Rheumatoid arthritis
  118. METHYLPREDNISOLONE [Concomitant]
     Active Substance: METHYLPREDNISOLONE
  119. METHYLPREDNISOLONE SODIUM SUCCINATE [Concomitant]
     Active Substance: METHYLPREDNISOLONE SODIUM SUCCINATE
     Indication: Rheumatoid arthritis
  120. MINOCYCLINE [Concomitant]
     Active Substance: MINOCYCLINE HYDROCHLORIDE
     Indication: Product used for unknown indication
  121. MINOCYCLINE HYDROCHLORIDE [Concomitant]
     Active Substance: MINOCYCLINE HYDROCHLORIDE
     Indication: Rheumatoid arthritis
  122. MINOCYCLINE HYDROCHLORIDE [Concomitant]
     Active Substance: MINOCYCLINE HYDROCHLORIDE
  123. MYOCHRYSINE [Concomitant]
     Active Substance: GOLD SODIUM THIOMALATE
     Indication: Rheumatoid arthritis
  124. MYOCHRYSINE [Concomitant]
     Active Substance: GOLD SODIUM THIOMALATE
     Route: 030
  125. MYRBETRIQ [Concomitant]
     Active Substance: MIRABEGRON
     Indication: Product used for unknown indication
  126. MYRBETRIQ [Concomitant]
     Active Substance: MIRABEGRON
  127. MYRBETRIQ [Concomitant]
     Active Substance: MIRABEGRON
  128. MYRBETRIQ [Concomitant]
     Active Substance: MIRABEGRON
  129. MYRBETRIQ [Concomitant]
     Active Substance: MIRABEGRON
  130. NAPROXEN [Concomitant]
     Active Substance: NAPROXEN
     Indication: Product used for unknown indication
  131. NAPROXEN [Concomitant]
     Active Substance: NAPROXEN
  132. NAPROXEN SODIUM [Concomitant]
     Active Substance: NAPROXEN SODIUM
     Indication: Rheumatoid arthritis
  133. NAPROXEN SODIUM [Concomitant]
     Active Substance: NAPROXEN SODIUM
  134. NICOTINAMIDE [Concomitant]
     Active Substance: NIACINAMIDE
     Indication: Product used for unknown indication
  135. NUCALA [Concomitant]
     Active Substance: MEPOLIZUMAB
     Indication: Product used for unknown indication
  136. OXYCODONE [Concomitant]
     Active Substance: OXYCODONE
     Indication: Product used for unknown indication
  137. OXYCODONE TEREPHTHALATE [Concomitant]
     Active Substance: OXYCODONE TEREPHTHALATE
     Indication: Product used for unknown indication
  138. PERIOGARD [Concomitant]
     Active Substance: CHLORHEXIDINE GLUCONATE
     Indication: Product used for unknown indication
  139. PHTHALYLSULFATHIAZOLE [Concomitant]
     Active Substance: PHTHALYLSULFATHIAZOLE
     Indication: Rheumatoid arthritis
  140. PHTHALYLSULFATHIAZOLE [Concomitant]
     Active Substance: PHTHALYLSULFATHIAZOLE
  141. PHTHALYLSULFATHIAZOLE [Concomitant]
     Active Substance: PHTHALYLSULFATHIAZOLE
     Route: 048
  142. PHTHALYLSULFATHIAZOLE [Concomitant]
     Active Substance: PHTHALYLSULFATHIAZOLE
  143. PHTHALYLSULFATHIAZOLE [Concomitant]
     Active Substance: PHTHALYLSULFATHIAZOLE
     Route: 048
  144. PHTHALYLSULFATHIAZOLE [Concomitant]
     Active Substance: PHTHALYLSULFATHIAZOLE
     Route: 040
  145. HYDROXYCHLOROQUINE DIPHOSPHATE [Concomitant]
     Active Substance: HYDROXYCHLOROQUINE DIPHOSPHATE
     Indication: Rheumatoid arthritis
  146. PREDNISONE [Concomitant]
     Active Substance: PREDNISONE
     Indication: Rheumatoid arthritis
  147. PREDNISONE [Concomitant]
     Active Substance: PREDNISONE
     Route: 048
  148. PREDNISONE [Concomitant]
     Active Substance: PREDNISONE
  149. PREDNISONE [Concomitant]
     Active Substance: PREDNISONE
  150. PREDNISONE [Concomitant]
     Active Substance: PREDNISONE
  151. PREDNISONE [Concomitant]
     Active Substance: PREDNISONE
     Route: 048
  152. PREDNISONE [Concomitant]
     Active Substance: PREDNISONE
     Route: 048
  153. PSEUDOEPHEDRINE [Concomitant]
     Active Substance: PSEUDOEPHEDRINE
     Indication: Rheumatoid arthritis
  154. PSEUDOEPHEDRINE [Concomitant]
     Active Substance: PSEUDOEPHEDRINE
  155. PSEUDOEPHEDRINE [Concomitant]
     Active Substance: PSEUDOEPHEDRINE
  156. PSEUDOEPHEDRINE [Concomitant]
     Active Substance: PSEUDOEPHEDRINE
  157. RAMIPRIL [Concomitant]
     Active Substance: RAMIPRIL
     Indication: Rheumatoid arthritis
  158. RAMIPRIL [Concomitant]
     Active Substance: RAMIPRIL
     Route: 040
  159. RAMIPRIL [Concomitant]
     Active Substance: RAMIPRIL
     Route: 016
  160. RANITIDINE [Concomitant]
     Active Substance: RANITIDINE
     Indication: Product used for unknown indication
  161. CETIRIZINE HYDROCHLORIDE\PSEUDOEPHEDRINE HYDROCHLORIDE [Concomitant]
     Active Substance: CETIRIZINE HYDROCHLORIDE\PSEUDOEPHEDRINE HYDROCHLORIDE
     Indication: Rheumatoid arthritis
  162. CETIRIZINE HYDROCHLORIDE\PSEUDOEPHEDRINE HYDROCHLORIDE [Concomitant]
     Active Substance: CETIRIZINE HYDROCHLORIDE\PSEUDOEPHEDRINE HYDROCHLORIDE
  163. CETIRIZINE HYDROCHLORIDE\PSEUDOEPHEDRINE HYDROCHLORIDE [Concomitant]
     Active Substance: CETIRIZINE HYDROCHLORIDE\PSEUDOEPHEDRINE HYDROCHLORIDE
  164. CETIRIZINE HYDROCHLORIDE\PSEUDOEPHEDRINE HYDROCHLORIDE [Concomitant]
     Active Substance: CETIRIZINE HYDROCHLORIDE\PSEUDOEPHEDRINE HYDROCHLORIDE
  165. REMICADE [Concomitant]
     Active Substance: INFLIXIMAB
     Indication: Rheumatoid arthritis
     Route: 058
  166. REMICADE [Concomitant]
     Active Substance: INFLIXIMAB
     Route: 040
  167. REMICADE [Concomitant]
     Active Substance: INFLIXIMAB
     Route: 040
  168. REMICADE [Concomitant]
     Active Substance: INFLIXIMAB
     Route: 040
  169. REMICADE [Concomitant]
     Active Substance: INFLIXIMAB
     Route: 040
  170. REMICADE [Concomitant]
     Active Substance: INFLIXIMAB
  171. RIBOFLAVIN [Concomitant]
     Active Substance: RIBOFLAVIN
     Indication: Product used for unknown indication
  172. RIBOFLAVIN [Concomitant]
     Active Substance: RIBOFLAVIN
  173. RITUXIMAB [Concomitant]
     Active Substance: RITUXIMAB
     Indication: Rheumatoid arthritis
  174. RITUXIMAB [Concomitant]
     Active Substance: RITUXIMAB
  175. RITUXIMAB [Concomitant]
     Active Substance: RITUXIMAB
  176. RITUXIMAB [Concomitant]
     Active Substance: RITUXIMAB
  177. RITUXIMAB [Concomitant]
     Active Substance: RITUXIMAB
  178. RITUXIMAB [Concomitant]
     Active Substance: RITUXIMAB
     Route: 016
  179. RITUXIMAB [Concomitant]
     Active Substance: RITUXIMAB
     Route: 016
  180. RITUXIMAB [Concomitant]
     Active Substance: RITUXIMAB
  181. RITUXIMAB [Concomitant]
     Active Substance: RITUXIMAB
     Route: 016
  182. RITUXIMAB [Concomitant]
     Active Substance: RITUXIMAB
     Route: 042
  183. RITUXIMAB [Concomitant]
     Active Substance: RITUXIMAB
     Route: 042
  184. RITUXIMAB [Concomitant]
     Active Substance: RITUXIMAB
     Route: 040
  185. RITUXIMAB [Concomitant]
     Active Substance: RITUXIMAB
     Route: 043
  186. SULFASALAZINE [Concomitant]
     Active Substance: SULFASALAZINE
     Indication: Rheumatoid arthritis
  187. SIMPONI [Concomitant]
     Active Substance: GOLIMUMAB
     Indication: Rheumatoid arthritis
  188. SIMPONI [Concomitant]
     Active Substance: GOLIMUMAB
     Indication: Prostatic specific antigen
  189. SIMPONI [Concomitant]
     Active Substance: GOLIMUMAB
  190. SIMPONI [Concomitant]
     Active Substance: GOLIMUMAB
  191. SIMPONI [Concomitant]
     Active Substance: GOLIMUMAB
     Route: 058
  192. SIMPONI [Concomitant]
     Active Substance: GOLIMUMAB
     Route: 058
  193. SIRUKUMAB [Concomitant]
     Active Substance: SIRUKUMAB
     Indication: Product used for unknown indication
  194. GOLD SODIUM THIOMALATE [Concomitant]
     Active Substance: GOLD SODIUM THIOMALATE
     Indication: Product used for unknown indication
  195. GOLD SODIUM THIOMALATE [Concomitant]
     Active Substance: GOLD SODIUM THIOMALATE
     Route: 048
  196. STELARA [Concomitant]
     Active Substance: USTEKINUMAB
     Indication: Product used for unknown indication
  197. STELARA [Concomitant]
     Active Substance: USTEKINUMAB
  198. STELARA [Concomitant]
     Active Substance: USTEKINUMAB
  199. STELARA [Concomitant]
     Active Substance: USTEKINUMAB
  200. TRAMADOL HYDROCHLORIDE [Concomitant]
     Active Substance: TRAMADOL HYDROCHLORIDE
     Indication: Product used for unknown indication
  201. ACETAMINOPHEN AND CODEINE [Concomitant]
     Active Substance: ACETAMINOPHEN\CODEINE PHOSPHATE
     Indication: Product used for unknown indication
  202. ACTEMRA [Concomitant]
     Active Substance: TOCILIZUMAB
     Indication: Rheumatoid arthritis
     Route: 041
  203. ACTEMRA [Concomitant]
     Active Substance: TOCILIZUMAB
     Route: 041
  204. ACTEMRA [Concomitant]
     Active Substance: TOCILIZUMAB
     Route: 041
  205. ACTEMRA [Concomitant]
     Active Substance: TOCILIZUMAB
     Route: 041
  206. ACTEMRA [Concomitant]
     Active Substance: TOCILIZUMAB
     Route: 041
  207. ACTEMRA [Concomitant]
     Active Substance: TOCILIZUMAB
     Route: 041
  208. ACTEMRA [Concomitant]
     Active Substance: TOCILIZUMAB
     Route: 041
  209. ACTEMRA [Concomitant]
     Active Substance: TOCILIZUMAB
     Route: 041
  210. ACTEMRA [Concomitant]
     Active Substance: TOCILIZUMAB
     Route: 041
  211. ACTEMRA [Concomitant]
     Active Substance: TOCILIZUMAB
  212. ACTEMRA [Concomitant]
     Active Substance: TOCILIZUMAB
     Route: 041
  213. ACTEMRA [Concomitant]
     Active Substance: TOCILIZUMAB
     Route: 041
  214. ACTEMRA [Concomitant]
     Active Substance: TOCILIZUMAB
     Route: 041
  215. ACTEMRA [Concomitant]
     Active Substance: TOCILIZUMAB
     Route: 041
  216. ACTEMRA [Concomitant]
     Active Substance: TOCILIZUMAB
     Route: 041
  217. DICLOFENAC SODIUM [Concomitant]
     Active Substance: DICLOFENAC SODIUM
     Indication: Product used for unknown indication
  218. DICLOFENAC SODIUM [Concomitant]
     Active Substance: DICLOFENAC SODIUM
  219. LEFLUNOMIDE [Concomitant]
     Active Substance: LEFLUNOMIDE
     Indication: Rheumatoid arthritis
  220. LEFLUNOMIDE [Concomitant]
     Active Substance: LEFLUNOMIDE
  221. LEFLUNOMIDE [Concomitant]
     Active Substance: LEFLUNOMIDE
  222. LEFLUNOMIDE [Concomitant]
     Active Substance: LEFLUNOMIDE
  223. LEFLUNOMIDE [Concomitant]
     Active Substance: LEFLUNOMIDE
  224. LEFLUNOMIDE [Concomitant]
     Active Substance: LEFLUNOMIDE
  225. LEFLUNOMIDE [Concomitant]
     Active Substance: LEFLUNOMIDE
  226. ARAVA [Concomitant]
     Active Substance: LEFLUNOMIDE
     Indication: Rheumatoid arthritis
     Route: 048
  227. ARAVA [Concomitant]
     Active Substance: LEFLUNOMIDE
  228. ATOMOXETINE [Concomitant]
     Active Substance: ATOMOXETINE
     Indication: Migraine
  229. ATOMOXETINE [Concomitant]
     Active Substance: ATOMOXETINE
  230. ATOMOXETINE [Concomitant]
     Active Substance: ATOMOXETINE
  231. BERINERT [Concomitant]
     Active Substance: HUMAN C1-ESTERASE INHIBITOR
     Indication: Product used for unknown indication
  232. BOTULINUM TOXIN TYPE A [Concomitant]
     Active Substance: BOTULINUM TOXIN TYPE A
     Indication: Product used for unknown indication
  233. BUTRANS [Concomitant]
     Active Substance: BUPRENORPHINE
     Indication: Product used for unknown indication
  234. BUTRANS [Concomitant]
     Active Substance: BUPRENORPHINE
  235. CALCIUM [Concomitant]
     Active Substance: CALCIUM
     Indication: Product used for unknown indication
  236. CALCIUM ASCORBATE [Concomitant]
     Active Substance: CALCIUM ASCORBATE
     Indication: Product used for unknown indication
  237. CALCIUM ASCORBATE [Concomitant]
     Active Substance: CALCIUM ASCORBATE
  238. CALCIUM CITRATE [Concomitant]
     Active Substance: CALCIUM CITRATE
     Indication: Product used for unknown indication
  239. CALCIUM GLUBIONATE [Concomitant]
     Active Substance: CALCIUM GLUBIONATE
     Indication: Product used for unknown indication
  240. CALCIUM GLUBIONATE [Concomitant]
     Active Substance: CALCIUM GLUBIONATE
  241. CELEBREX [Concomitant]
     Active Substance: CELECOXIB
     Indication: Migraine
  242. CELEBREX [Concomitant]
     Active Substance: CELECOXIB
  243. CELEBREX [Concomitant]
     Active Substance: CELECOXIB
  244. CELEBREX [Concomitant]
     Active Substance: CELECOXIB
  245. CHOLECALCIFEROL [Concomitant]
     Active Substance: CHOLECALCIFEROL
     Indication: Product used for unknown indication
  246. CIMZIA [Concomitant]
     Active Substance: CERTOLIZUMAB PEGOL
     Indication: Rheumatoid arthritis
  247. CIMZIA [Concomitant]
     Active Substance: CERTOLIZUMAB PEGOL
  248. CIMZIA [Concomitant]
     Active Substance: CERTOLIZUMAB PEGOL
  249. CIMZIA [Concomitant]
     Active Substance: CERTOLIZUMAB PEGOL
  250. CIMZIA [Concomitant]
     Active Substance: CERTOLIZUMAB PEGOL
  251. CORTISONE ACETATE [Concomitant]
     Active Substance: CORTISONE ACETATE
     Indication: Rheumatoid arthritis
  252. CORTISONE ACETATE [Concomitant]
     Active Substance: CORTISONE ACETATE
  253. CORTISONE ACETATE [Concomitant]
     Active Substance: CORTISONE ACETATE
  254. CORTISONE ACETATE [Concomitant]
     Active Substance: CORTISONE ACETATE
  255. DESOXIMETASONE [Concomitant]
     Active Substance: DESOXIMETASONE
     Indication: Rheumatoid arthritis
  256. DESOXIMETASONE [Concomitant]
     Active Substance: DESOXIMETASONE
  257. DESOXIMETASONE [Concomitant]
     Active Substance: DESOXIMETASONE
  258. DESOXIMETASONE [Concomitant]
     Active Substance: DESOXIMETASONE
  259. DESOXIMETASONE [Concomitant]
     Active Substance: DESOXIMETASONE
  260. DICLOFENAC SODIUM [Concomitant]
     Active Substance: DICLOFENAC SODIUM
     Indication: Product used for unknown indication
     Route: 058
  261. DOMPERIDONE MALEATE [Concomitant]
     Active Substance: DOMPERIDONE MALEATE
     Indication: Product used for unknown indication
  262. DOMPERIDONE MALEATE [Concomitant]
     Active Substance: DOMPERIDONE MALEATE
  263. ENBREL [Concomitant]
     Active Substance: ETANERCEPT
     Indication: Rheumatoid arthritis
     Route: 058
  264. ENBREL [Concomitant]
     Active Substance: ETANERCEPT
     Route: 058
  265. ENBREL [Concomitant]
     Active Substance: ETANERCEPT
     Route: 058
  266. ENBREL [Concomitant]
     Active Substance: ETANERCEPT
     Route: 058
  267. ENBREL [Concomitant]
     Active Substance: ETANERCEPT
     Route: 058
  268. ERGOCALCIFEROL [Concomitant]
     Active Substance: ERGOCALCIFEROL
     Indication: Product used for unknown indication
  269. FLUMETHASONE [Concomitant]
     Active Substance: FLUMETHASONE
     Indication: Product used for unknown indication
  270. FOSAMAX [Concomitant]
     Active Substance: ALENDRONATE SODIUM
     Indication: Rheumatoid arthritis
  271. FOSAMAX [Concomitant]
     Active Substance: ALENDRONATE SODIUM
  272. FOSAMAX [Concomitant]
     Active Substance: ALENDRONATE SODIUM
  273. FOSAMAX [Concomitant]
     Active Substance: ALENDRONATE SODIUM
     Route: 016
  274. FOSAMAX [Concomitant]
     Active Substance: ALENDRONATE SODIUM
     Route: 048
  275. KEVZARA [Concomitant]
     Active Substance: SARILUMAB
     Indication: Product used for unknown indication
  276. LAMICTAL [Concomitant]
     Active Substance: LAMOTRIGINE
     Indication: Product used for unknown indication
  277. LAMICTAL [Concomitant]
     Active Substance: LAMOTRIGINE
  278. LAMICTAL [Concomitant]
     Active Substance: LAMOTRIGINE
  279. LEFLUNOMIDE [Concomitant]
     Active Substance: LEFLUNOMIDE
     Indication: Rheumatoid arthritis
  280. LEFLUNOMIDE [Concomitant]
     Active Substance: LEFLUNOMIDE
  281. LEFLUNOMIDE [Concomitant]
     Active Substance: LEFLUNOMIDE
  282. LEFLUNOMIDE [Concomitant]
     Active Substance: LEFLUNOMIDE
     Route: 048
  283. LEFLUNOMIDE [Concomitant]
     Active Substance: LEFLUNOMIDE
  284. LEFLUNOMIDE [Concomitant]
     Active Substance: LEFLUNOMIDE
  285. LEFLUNOMIDE [Concomitant]
     Active Substance: LEFLUNOMIDE
     Route: 048
  286. VITAMIN C [Concomitant]
     Active Substance: ASCORBIC ACID
     Indication: Product used for unknown indication
  287. GOLD [Concomitant]
     Active Substance: GOLD
     Indication: Product used for unknown indication
  288. ALENDRONATE SODIUM\CHOLECALCIFEROL [Concomitant]
     Active Substance: ALENDRONATE SODIUM\CHOLECALCIFEROL
     Indication: Rheumatoid arthritis
  289. ALENDRONIC ACID [Concomitant]
     Active Substance: ALENDRONIC ACID
     Indication: Rheumatoid arthritis
     Route: 048
  290. PREDNISONE [Concomitant]
     Active Substance: PREDNISONE
     Indication: Rheumatoid arthritis
     Route: 048
  291. PREDNISONE [Concomitant]
     Active Substance: PREDNISONE
  292. PREDNISONE [Concomitant]
     Active Substance: PREDNISONE
     Route: 048
  293. PREDNISONE [Concomitant]
     Active Substance: PREDNISONE
  294. PREDNISONE [Concomitant]
     Active Substance: PREDNISONE
     Route: 048
  295. CERTOLIZUMAB PEGOL [Concomitant]
     Active Substance: CERTOLIZUMAB PEGOL
     Indication: Product used for unknown indication
     Route: 058
  296. CERTOLIZUMAB PEGOL [Concomitant]
     Active Substance: CERTOLIZUMAB PEGOL
     Route: 016
  297. CERTOLIZUMAB PEGOL [Concomitant]
     Active Substance: CERTOLIZUMAB PEGOL
  298. CETIRIZINE [Concomitant]
     Active Substance: CETIRIZINE HYDROCHLORIDE
     Indication: Rheumatoid arthritis
  299. CETIRIZINE [Concomitant]
     Active Substance: CETIRIZINE HYDROCHLORIDE
  300. CETIRIZINE [Concomitant]
     Active Substance: CETIRIZINE HYDROCHLORIDE
     Route: 048
  301. CETIRIZINE [Concomitant]
     Active Substance: CETIRIZINE HYDROCHLORIDE
  302. ERENUMAB [Concomitant]
     Active Substance: ERENUMAB
     Indication: Migraine
  303. GOLIMUMAB [Concomitant]
     Active Substance: GOLIMUMAB
     Indication: Rheumatoid arthritis
     Route: 058
  304. GOLIMUMAB [Concomitant]
     Active Substance: GOLIMUMAB
  305. HUMIRA [Concomitant]
     Active Substance: ADALIMUMAB
     Indication: Rheumatoid arthritis
     Route: 058
  306. HUMIRA [Concomitant]
     Active Substance: ADALIMUMAB
     Route: 058
  307. HUMIRA [Concomitant]
     Active Substance: ADALIMUMAB
     Route: 058
  308. HUMIRA [Concomitant]
     Active Substance: ADALIMUMAB
  309. HUMIRA [Concomitant]
     Active Substance: ADALIMUMAB
     Route: 058
  310. SULFASALAZINE [Concomitant]
     Active Substance: SULFASALAZINE
     Route: 048
  311. SULFASALAZINE [Concomitant]
     Active Substance: SULFASALAZINE
     Route: 048
  312. SULFASALAZINE [Concomitant]
     Active Substance: SULFASALAZINE
  313. SULFASALAZINE [Concomitant]
     Active Substance: SULFASALAZINE
  314. SULFASALAZINE [Concomitant]
     Active Substance: SULFASALAZINE
  315. SULFASALAZINE [Concomitant]
     Active Substance: SULFASALAZINE
     Route: 048
  316. SULFASALAZINE [Concomitant]
     Active Substance: SULFASALAZINE
     Route: 048
  317. SULFASALAZINE [Concomitant]
     Active Substance: SULFASALAZINE
     Route: 048
  318. SULFASALAZINE [Concomitant]
     Active Substance: SULFASALAZINE
     Route: 048
  319. SULFASALAZINE [Concomitant]
     Active Substance: SULFASALAZINE
     Route: 048
  320. SULFASALAZINE [Concomitant]
     Active Substance: SULFASALAZINE
     Route: 048
  321. SULFASALAZINE [Concomitant]
     Active Substance: SULFASALAZINE
     Route: 048
  322. SULFASALAZINE [Concomitant]
     Active Substance: SULFASALAZINE
     Route: 058
  323. SULFASALAZINE [Concomitant]
     Active Substance: SULFASALAZINE
     Route: 058
  324. SULFASALAZINE [Concomitant]
     Active Substance: SULFASALAZINE
     Route: 058
  325. SULFASALAZINE [Concomitant]
     Active Substance: SULFASALAZINE
     Route: 058
  326. SULFASALAZINE [Concomitant]
     Active Substance: SULFASALAZINE
     Route: 058
  327. SULFASALAZINE [Concomitant]
     Active Substance: SULFASALAZINE
     Route: 058
  328. SULFASALAZINE [Concomitant]
     Active Substance: SULFASALAZINE
     Route: 048
  329. SULFASALAZINE [Concomitant]
     Active Substance: SULFASALAZINE
  330. SULFASALAZINE [Concomitant]
     Active Substance: SULFASALAZINE
     Route: 048
  331. SULFASALAZINE [Concomitant]
     Active Substance: SULFASALAZINE
     Route: 016
  332. SULFASALAZINE [Concomitant]
     Active Substance: SULFASALAZINE
     Route: 058
  333. THIAMINE HYDROCHLORIDE [Concomitant]
     Active Substance: THIAMINE HYDROCHLORIDE
  334. TOCILIZUMAB [Concomitant]
     Active Substance: TOCILIZUMAB
     Indication: Rheumatoid arthritis
     Route: 058
  335. TOCILIZUMAB [Concomitant]
     Active Substance: TOCILIZUMAB
     Route: 042
  336. TOCILIZUMAB [Concomitant]
     Active Substance: TOCILIZUMAB
     Route: 040
  337. TOCILIZUMAB [Concomitant]
     Active Substance: TOCILIZUMAB
  338. TOCILIZUMAB [Concomitant]
     Active Substance: TOCILIZUMAB
     Route: 016
  339. TOCILIZUMAB [Concomitant]
     Active Substance: TOCILIZUMAB
     Route: 058
  340. TOCILIZUMAB [Concomitant]
     Active Substance: TOCILIZUMAB
     Route: 040
  341. TOCILIZUMAB [Concomitant]
     Active Substance: TOCILIZUMAB
     Route: 058
  342. TOFACITINIB CITRATE [Concomitant]
     Active Substance: TOFACITINIB CITRATE
     Indication: Rheumatoid arthritis
  343. TOFACITINIB CITRATE [Concomitant]
     Active Substance: TOFACITINIB CITRATE
  344. TOFACITINIB CITRATE [Concomitant]
     Active Substance: TOFACITINIB CITRATE
     Route: 048
  345. TOFACITINIB CITRATE [Concomitant]
     Active Substance: TOFACITINIB CITRATE
     Route: 048
  346. TOFACITINIB CITRATE [Concomitant]
     Active Substance: TOFACITINIB CITRATE
     Route: 048
  347. TOFACITINIB CITRATE [Concomitant]
     Active Substance: TOFACITINIB CITRATE
  348. TOPIRAMATE [Concomitant]
     Active Substance: TOPIRAMATE
     Indication: Rheumatoid arthritis
  349. TOPIRAMATE [Concomitant]
     Active Substance: TOPIRAMATE
  350. TOPIRAMATE [Concomitant]
     Active Substance: TOPIRAMATE
  351. TOPIRAMATE [Concomitant]
     Active Substance: TOPIRAMATE
  352. USTEKINUMAB [Concomitant]
     Active Substance: USTEKINUMAB
     Indication: Product used for unknown indication
     Route: 058
  353. USTEKINUMAB [Concomitant]
     Active Substance: USTEKINUMAB
  354. USTEKINUMAB [Concomitant]
     Active Substance: USTEKINUMAB
     Route: 058
  355. VITAMIN D3 [Concomitant]
     Active Substance: CHOLECALCIFEROL
  356. XELJANZ [Concomitant]
     Active Substance: TOFACITINIB CITRATE
     Indication: Rheumatoid arthritis
     Route: 048
  357. XELJANZ [Concomitant]
     Active Substance: TOFACITINIB CITRATE
     Route: 048
  358. XELJANZ [Concomitant]
     Active Substance: TOFACITINIB CITRATE
     Route: 048
  359. XELJANZ [Concomitant]
     Active Substance: TOFACITINIB CITRATE
     Route: 048
  360. XELJANZ [Concomitant]
     Active Substance: TOFACITINIB CITRATE
  361. ZINC [Concomitant]
     Active Substance: ZINC
     Indication: Rheumatoid arthritis
  362. APREMILAST [Concomitant]
     Active Substance: APREMILAST
     Indication: Rheumatoid arthritis
  363. APREMILAST [Concomitant]
     Active Substance: APREMILAST
  364. APREMILAST [Concomitant]
     Active Substance: APREMILAST
  365. APREMILAST [Concomitant]
     Active Substance: APREMILAST
  366. AZATHIOPRINE SODIUM [Concomitant]
     Active Substance: AZATHIOPRINE SODIUM
     Indication: Rheumatoid arthritis
  367. AZATHIOPRINE SODIUM [Concomitant]
     Active Substance: AZATHIOPRINE SODIUM
  368. AZATHIOPRINE SODIUM [Concomitant]
     Active Substance: AZATHIOPRINE SODIUM
  369. AZATHIOPRINE SODIUM [Concomitant]
     Active Substance: AZATHIOPRINE SODIUM
  370. DICLOFENAC DIETHYLAMINE [Concomitant]
     Active Substance: DICLOFENAC DIETHYLAMINE
     Indication: Product used for unknown indication
     Route: 058
  371. DICLOFENAC DIETHYLAMINE [Concomitant]
     Active Substance: DICLOFENAC DIETHYLAMINE
  372. DICLOFENAC DIETHYLAMINE [Concomitant]
     Active Substance: DICLOFENAC DIETHYLAMINE
  373. NAPROXEN [Concomitant]
     Active Substance: NAPROXEN
     Indication: Product used for unknown indication
  374. PHENYLEPHRINE HYDROCHLORIDE [Concomitant]
     Active Substance: PHENYLEPHRINE HYDROCHLORIDE
     Indication: Rheumatoid arthritis
  375. PSEUDOEPHEDRINE HYDROCHLORIDE [Concomitant]
     Active Substance: PSEUDOEPHEDRINE HYDROCHLORIDE
     Indication: Rheumatoid arthritis
  376. PSEUDOEPHEDRINE HYDROCHLORIDE [Concomitant]
     Active Substance: PSEUDOEPHEDRINE HYDROCHLORIDE
  377. PSEUDOEPHEDRINE HYDROCHLORIDE [Concomitant]
     Active Substance: PSEUDOEPHEDRINE HYDROCHLORIDE
  378. PSEUDOEPHEDRINE HYDROCHLORIDE [Concomitant]
     Active Substance: PSEUDOEPHEDRINE HYDROCHLORIDE
  379. TETRACYCLINE HYDROCHLORIDE [Concomitant]
     Active Substance: TETRACYCLINE HYDROCHLORIDE
     Indication: Rheumatoid arthritis
  380. TRUXIMA [Concomitant]
     Active Substance: RITUXIMAB-ABBS
     Indication: Rheumatoid arthritis
     Route: 042
  381. TRUXIMA [Concomitant]
     Active Substance: RITUXIMAB-ABBS
     Route: 042
  382. TRUXIMA [Concomitant]
     Active Substance: RITUXIMAB-ABBS
     Route: 042
  383. TRUXIMA [Concomitant]
     Active Substance: RITUXIMAB-ABBS
  384. TRUXIMA [Concomitant]
     Active Substance: RITUXIMAB-ABBS
  385. TRUXIMA [Concomitant]
     Active Substance: RITUXIMAB-ABBS
     Route: 058
  386. TRUXIMA [Concomitant]
     Active Substance: RITUXIMAB-ABBS
     Route: 042
  387. TRUXIMA [Concomitant]
     Active Substance: RITUXIMAB-ABBS
     Route: 042
  388. TRUXIMA [Concomitant]
     Active Substance: RITUXIMAB-ABBS
     Route: 016
  389. TRUXIMA [Concomitant]
     Active Substance: RITUXIMAB-ABBS
     Route: 016
  390. TRUXIMA [Concomitant]
     Active Substance: RITUXIMAB-ABBS
     Route: 016
  391. TRUXIMA [Concomitant]
     Active Substance: RITUXIMAB-ABBS
     Route: 058
  392. TRUXIMA [Concomitant]
     Active Substance: RITUXIMAB-ABBS
  393. TRUXIMA [Concomitant]
     Active Substance: RITUXIMAB-ABBS
  394. TRUXIMA [Concomitant]
     Active Substance: RITUXIMAB-ABBS
  395. TRUXIMA [Concomitant]
     Active Substance: RITUXIMAB-ABBS
  396. TRUXIMA [Concomitant]
     Active Substance: RITUXIMAB-ABBS
     Route: 040
  397. TRUXIMA [Concomitant]
     Active Substance: RITUXIMAB-ABBS
     Route: 040
  398. TRUXIMA [Concomitant]
     Active Substance: RITUXIMAB-ABBS
     Route: 042
  399. TRUXIMA [Concomitant]
     Active Substance: RITUXIMAB-ABBS
     Route: 043
  400. TRUXIMA [Concomitant]
     Active Substance: RITUXIMAB-ABBS
     Route: 016
  401. SULFAMETHOXAZOLE\TRIMETHOPRIM [Concomitant]
     Active Substance: SULFAMETHOXAZOLE\TRIMETHOPRIM
     Indication: Product used for unknown indication
  402. TOFACITINIB [Concomitant]
     Active Substance: TOFACITINIB
     Indication: Rheumatoid arthritis

REACTIONS (119)
  - Helicobacter infection [Unknown]
  - Hepatic enzyme increased [Unknown]
  - Hepatitis [Unknown]
  - Hypercholesterolaemia [Unknown]
  - Hypersensitivity [Unknown]
  - Hypertension [Unknown]
  - Hypoaesthesia [Unknown]
  - Ill-defined disorder [Unknown]
  - Impaired healing [Unknown]
  - Inflammation [Unknown]
  - Infusion related reaction [Unknown]
  - Injection site reaction [Unknown]
  - Injury [Unknown]
  - Insomnia [Unknown]
  - Irritable bowel syndrome [Unknown]
  - Joint range of motion decreased [Unknown]
  - Joint swelling [Unknown]
  - Lip dry [Unknown]
  - Liver function test increased [Unknown]
  - Liver injury [Unknown]
  - Lower respiratory tract infection [Unknown]
  - Lung disorder [Unknown]
  - Malaise [Unknown]
  - Memory impairment [Unknown]
  - Migraine [Unknown]
  - Mobility decreased [Unknown]
  - Muscle injury [Unknown]
  - Muscle spasms [Unknown]
  - Musculoskeletal pain [Unknown]
  - Musculoskeletal stiffness [Unknown]
  - Nail disorder [Unknown]
  - Nasopharyngitis [Unknown]
  - Nausea [Unknown]
  - Neck pain [Unknown]
  - Night sweats [Unknown]
  - Obesity [Unknown]
  - Off label use [Unknown]
  - Onychomadesis [Unknown]
  - Onychomycosis [Unknown]
  - Osteoarthritis [Unknown]
  - Pain [Unknown]
  - Pain in extremity [Unknown]
  - Paraesthesia [Unknown]
  - Pemphigus [Unknown]
  - Pericarditis [Unknown]
  - Peripheral swelling [Unknown]
  - Peripheral venous disease [Unknown]
  - Pneumonia [Unknown]
  - Hospitalisation [Unknown]
  - Adverse event [Unknown]
  - Abdominal discomfort [Unknown]
  - Abdominal distension [Unknown]
  - Abdominal pain upper [Unknown]
  - Adverse reaction [Unknown]
  - Alopecia [Unknown]
  - Anti-cyclic citrullinated peptide antibody positive [Unknown]
  - Arthralgia [Unknown]
  - Arthropathy [Unknown]
  - Asthenia [Unknown]
  - Back injury [Unknown]
  - Blepharospasm [Unknown]
  - Blister [Unknown]
  - Blood cholesterol increased [Unknown]
  - Breast cancer stage III [Unknown]
  - Bursitis [Unknown]
  - C-reactive protein abnormal [Unknown]
  - C-reactive protein increased [Unknown]
  - Coeliac disease [Unknown]
  - Condition aggravated [Unknown]
  - Confusional state [Unknown]
  - Depression [Unknown]
  - Diarrhoea [Unknown]
  - Dizziness [Unknown]
  - Drug hypersensitivity [Unknown]
  - Drug ineffective [Unknown]
  - Drug intolerance [Unknown]
  - Drug-induced liver injury [Unknown]
  - Dry mouth [Unknown]
  - Duodenal ulcer perforation [Unknown]
  - Dyspepsia [Unknown]
  - Dyspnoea [Unknown]
  - Epilepsy [Unknown]
  - Facet joint syndrome [Unknown]
  - Fall [Unknown]
  - Fatigue [Unknown]
  - Fibromyalgia [Unknown]
  - Finger deformity [Unknown]
  - Folliculitis [Unknown]
  - Gait inability [Unknown]
  - Gastrointestinal disorder [Unknown]
  - General physical health deterioration [Unknown]
  - Glossodynia [Unknown]
  - Grip strength decreased [Unknown]
  - Hand deformity [Unknown]
  - Headache [Unknown]
  - Gastrooesophageal reflux disease [Unknown]
  - Muscular weakness [Unknown]
  - Product label confusion [Unknown]
  - Product quality issue [Unknown]
  - Rash [Unknown]
  - Rheumatic fever [Unknown]
  - Sleep disorder [Unknown]
  - Stomatitis [Unknown]
  - Swelling [Unknown]
  - Synovitis [Unknown]
  - Systemic lupus erythematosus [Unknown]
  - Taste disorder [Unknown]
  - Therapeutic product effect decreased [Unknown]
  - Treatment failure [Unknown]
  - Type 2 diabetes mellitus [Unknown]
  - Urticaria [Unknown]
  - Vomiting [Unknown]
  - Weight increased [Unknown]
  - Wheezing [Unknown]
  - Wound [Unknown]
  - Wound infection [Unknown]
  - Product use issue [Unknown]
  - Psoriatic arthropathy [Unknown]
  - Rheumatoid arthritis [Unknown]
